FAERS Safety Report 9252640 (Version 1)
Quarter: 2013Q2

REPORT INFORMATION
  Report Type: Spontaneous
  Country: US (occurrence: US)
  Receive Date: 20130424
  Receipt Date: 20130424
  Transmission Date: 20140414
  Serious: Yes (Death)
  Sender: FDA-Public Use
  Company Number: US-GLAXOSMITHKLINE-A1020363A

PATIENT
  Age: 65 Year
  Sex: Male

DRUGS (2)
  1. VENTOLIN [Suspect]
     Indication: FLUID RETENTION
     Dosage: 2PUFF AS REQUIRED
     Route: 055
     Dates: end: 20130310
  2. PAIN MEDICATION [Concomitant]

REACTIONS (2)
  - Arteriosclerosis [Fatal]
  - Drug administration error [Unknown]
